FAERS Safety Report 8353879-5 (Version None)
Quarter: 2012Q2

REPORT INFORMATION
  Report Type: 
  Country: None (occurrence: None)
  Receive Date: 20120511
  Receipt Date: 20120131
  Transmission Date: 20120825
  Serious: No
  Sender: FDA-Public Use
  Company Number: US-GLAXOSMITHKLINE-A0964237A

PATIENT
  Age: 64 Year
  Sex: Female

DRUGS (1)
  1. TYKERB [Suspect]
     Indication: BREAST CANCER
     Dosage: 1250MG PER DAY
     Route: 048

REACTIONS (9)
  - PAIN IN EXTREMITY [None]
  - PIGMENTATION DISORDER [None]
  - ERYTHEMA [None]
  - CONSTIPATION [None]
  - DIZZINESS [None]
  - DIARRHOEA [None]
  - ALOPECIA [None]
  - PARAESTHESIA [None]
  - NAUSEA [None]
